FAERS Safety Report 6641229-1 (Version None)
Quarter: 2010Q1

REPORT INFORMATION
  Report Type: 
  Country: None (occurrence: None)
  Receive Date: 20100318
  Receipt Date: 20100311
  Transmission Date: 20100710
  Serious: Yes (Hospitalization)
  Sender: FDA-Public Use
  Company Number: FR-PFIZER INC-2010031495

PATIENT
  Age: 89 Year
  Sex: Female

DRUGS (14)
  1. XALATAN [Suspect]
     Dosage: UNK
     Route: 047
  2. ALPRAZOLAM [Suspect]
     Dosage: UNK
     Route: 048
     Dates: end: 20100217
  3. EFFEXOR [Suspect]
     Dosage: UNK
     Route: 048
     Dates: end: 20100217
  4. DILTIAZEM HCL [Suspect]
     Dosage: UNK
     Route: 048
     Dates: start: 20100209, end: 20100217
  5. LASILIX [Suspect]
     Dosage: UNK
     Route: 048
     Dates: start: 20100209, end: 20100217
  6. TRIATEC [Suspect]
     Dosage: UNK
     Route: 048
     Dates: start: 20100209, end: 20100217
  7. INIPOMP [Suspect]
     Dosage: UNK
     Route: 048
     Dates: end: 20100217
  8. DAFALGAN [Suspect]
     Dosage: UNK
     Route: 048
     Dates: end: 20100217
  9. KARDEGIC [Suspect]
     Dosage: UNK
     Route: 048
     Dates: end: 20100217
  10. LANTUS [Suspect]
     Dosage: UNK
     Route: 048
  11. DUPHALAC [Suspect]
     Dosage: UNK
     Route: 048
  12. CELLUVISC [Suspect]
     Dosage: UNK
     Route: 047
  13. DIAMOX SRC [Concomitant]
     Dosage: UNK
     Dates: end: 20100201
  14. ADANCOR [Concomitant]
     Dosage: UNK
     Dates: end: 20100201

REACTIONS (2)
  - PRURITUS [None]
  - THROMBOCYTOPENIA [None]
